FAERS Safety Report 19919970 (Version 3)
Quarter: 2021Q4

REPORT INFORMATION
  Report Type: Report from Study
  Country: DE (occurrence: DE)
  Receive Date: 20211005
  Receipt Date: 20211109
  Transmission Date: 20220303
  Serious: Yes (Hospitalization)
  Sender: FDA-Public Use
  Company Number: DE-EXELIXIS-XL18421044742

PATIENT

DRUGS (1)
  1. CABOZANTINIB [Suspect]
     Active Substance: CABOZANTINIB
     Indication: Renal cell carcinoma
     Dosage: 60 MG, QD
     Dates: start: 20210430

REACTIONS (11)
  - Transient ischaemic attack [Recovered/Resolved]
  - Myalgia [Unknown]
  - Dysgeusia [Unknown]
  - Rash pustular [Unknown]
  - Stomatitis [Recovered/Resolved]
  - Hypocalcaemia [Unknown]
  - Hypokalaemia [Recovered/Resolved]
  - Diarrhoea [Unknown]
  - Hypertension [Unknown]
  - Palmar-plantar erythrodysaesthesia syndrome [Unknown]
  - Epistaxis [Unknown]

NARRATIVE: CASE EVENT DATE: 20210501
